FAERS Safety Report 24574703 (Version 1)
Quarter: 2024Q4

REPORT INFORMATION
  Report Type: Spontaneous
  Country: CA (occurrence: CA)
  Receive Date: 20241104
  Receipt Date: 20241104
  Transmission Date: 20250115
  Serious: Yes (Other)
  Sender: AUROBINDO
  Company Number: CA-AUROBINDO-AUR-APL-2024-053217

PATIENT
  Age: 20 Month
  Sex: Male

DRUGS (6)
  1. AMOXICILLIN [Suspect]
     Active Substance: AMOXICILLIN
     Indication: Hyperkeratosis
     Dosage: UNK
     Route: 048
  2. CEPHALEXIN [Suspect]
     Active Substance: CEPHALEXIN
     Indication: Hyperkeratosis
     Dosage: UNK
     Route: 048
  3. OZENOXACIN [Suspect]
     Active Substance: OZENOXACIN
     Indication: Hyperkeratosis
     Dosage: UNK
     Route: 065
  4. FUSIDIC ACID [Suspect]
     Active Substance: FUSIDIC ACID
     Indication: Hyperkeratosis
     Dosage: UNK
     Route: 065
  5. BETAMETHASONE [Suspect]
     Active Substance: BETAMETHASONE
     Indication: Hyperkeratosis
     Dosage: UNK
     Route: 065
  6. TACROLIMUS [Suspect]
     Active Substance: TACROLIMUS
     Indication: Hyperkeratosis
     Dosage: UNK
     Route: 065

REACTIONS (1)
  - Treatment failure [Unknown]
